FAERS Safety Report 6927196-1 (Version None)
Quarter: 2010Q3

REPORT INFORMATION
  Report Type: 
  Country: None (occurrence: None)
  Receive Date: 20100816
  Receipt Date: 20100810
  Transmission Date: 20110219
  Serious: Yes (Death)
  Sender: FDA-Public Use
  Company Number: KR-ELI_LILLY_AND_COMPANY-KR201008003803

PATIENT

DRUGS (4)
  1. ALIMTA [Suspect]
     Dosage: 500 MG/M2, UNKNOWN
     Route: 065
  2. FOLIC ACID [Concomitant]
     Dosage: UNK, UNKNOWN
     Route: 065
  3. VITAMIN B-12 [Concomitant]
     Dosage: 1000 UG, UNKNOWN
     Route: 030
  4. DEXAMETHASONE [Concomitant]
     Dosage: 4 MG, 2/D
     Route: 048

REACTIONS (1)
  - PNEUMONIA [None]
